FAERS Safety Report 20631442 (Version 1)
Quarter: 2022Q1

REPORT INFORMATION
  Report Type: Spontaneous
  Country: US (occurrence: None)
  Receive Date: 20220323
  Receipt Date: 20220323
  Transmission Date: 20220424
  Serious: No
  Sender: FDA-Public Use
  Company Number: None

PATIENT
  Age: 84 Year
  Sex: Female
  Weight: 68.95 kg

DRUGS (7)
  1. CAPECITABINE [Suspect]
     Active Substance: CAPECITABINE
     Indication: Breast cancer female
     Dosage: FREQUENCY : TWICE A DAY;?
     Route: 048
  2. MELOXICAM ORAL TABLET [Concomitant]
  3. METOPROLOL TARTRATE [Concomitant]
     Active Substance: METOPROLOL TARTRATE
  4. PROPRANOLOL HCL ER ORAL [Concomitant]
  5. VALSARTAN [Concomitant]
     Active Substance: VALSARTAN
  6. VITAMIN D [Concomitant]
     Active Substance: VITAMIN D NOS
  7. ZOLEDRONIC ACID [Concomitant]
     Active Substance: ZOLEDRONIC ACID

REACTIONS (5)
  - Pain in extremity [None]
  - Arthritis [None]
  - Muscle spasms [None]
  - Gastric disorder [None]
  - Product dose omission issue [None]
